FAERS Safety Report 20450006 (Version 1)
Quarter: 2022Q1

REPORT INFORMATION
  Report Type: Spontaneous
  Country: DE (occurrence: None)
  Receive Date: 20220209
  Receipt Date: 20220209
  Transmission Date: 20220423
  Serious: Yes (Life-Threatening, Hospitalization, Other)
  Sender: FDA-Public Use
  Company Number: 2022A011596

PATIENT
  Sex: Male
  Weight: 89 kg

DRUGS (4)
  1. DAPAGLIFLOZIN [Suspect]
     Active Substance: DAPAGLIFLOZIN
     Indication: Type 2 diabetes mellitus
     Dosage: 10.0MG UNKNOWN
     Route: 048
     Dates: start: 202006, end: 202112
  2. METFORMIN [Concomitant]
     Active Substance: METFORMIN HYDROCHLORIDE
     Indication: Diabetes mellitus
     Dosage: 3X 500 MG PER DAY
     Route: 048
     Dates: start: 201911, end: 202112
  3. TORSEMIDE [Concomitant]
     Active Substance: TORSEMIDE
     Route: 048
     Dates: start: 2014
  4. FALITHROM [Concomitant]
     Active Substance: PHENPROCOUMON

REACTIONS (6)
  - Acute kidney injury [Recovered/Resolved]
  - Urosepsis [Recovered/Resolved]
  - Acute myocardial infarction [Recovered/Resolved]
  - Urinary tract disorder [Recovered/Resolved]
  - Cardiogenic shock [Recovered/Resolved]
  - Urinary tract infection [Recovered/Resolved]
